FAERS Safety Report 7554898-9 (Version None)
Quarter: 2011Q2

REPORT INFORMATION
  Report Type: 
  Country: None (occurrence: None)
  Receive Date: 20110615
  Receipt Date: 20110615
  Transmission Date: 20111010
  Serious: No
  Sender: FDA-Public Use
  Company Number: None

PATIENT
  Age: 60 Year
  Sex: Male
  Weight: 72.1 kg

DRUGS (1)
  1. VANCOMYCIN [Suspect]
     Indication: PYELONEPHRITIS
     Dosage: 1 GM BID IV
     Route: 042
     Dates: start: 20110513, end: 20110613

REACTIONS (1)
  - TUBULOINTERSTITIAL NEPHRITIS [None]
